FAERS Safety Report 9190670 (Version 1)
Quarter: 2013Q1

REPORT INFORMATION
  Report Type: Spontaneous
  Country: US (occurrence: None)
  Receive Date: 20120703
  Receipt Date: 20120703
  Transmission Date: 20140127
  Serious: Yes (Hospitalization, Other)
  Sender: FDA-Public Use
  Company Number: PHEH2012US008182

PATIENT
  Age: 44 Year
  Sex: Female
  Weight: 66.7 kg

DRUGS (4)
  1. GILENYA (FTY)CAPSULE,0.5MG [Suspect]
     Route: 048
     Dates: start: 20120413, end: 20120417
  2. LEXAPRO (ESCITALOPRAM OXALATE) [Concomitant]
  3. ORAL CONTRACEPTIVE NOS (CONTRACEPTIVE NOS) [Concomitant]
  4. ANTIPSYCHOTICS (NO INGREDIENTS/SUBSTANCES) [Concomitant]

REACTIONS (4)
  - Blood pressure systolic increased [None]
  - Palpitations [None]
  - Blood pressure increased [None]
  - Bradycardia [None]
